FAERS Safety Report 4796678-3 (Version None)
Quarter: 2005Q4

REPORT INFORMATION
  Report Type: 
  Country: None (occurrence: None)
  Receive Date: 20051006
  Receipt Date: 20051006
  Transmission Date: 20060501
  Serious: Yes (Hospitalization)
  Sender: FDA-Public Use
  Company Number: None

PATIENT
  Age: 48 Year
  Sex: Male
  Weight: 98.2 kg

DRUGS (1)
  1. BEVACIZUMAB [Suspect]
     Indication: NEUROENDOCRINE TUMOUR
     Dosage: IV Q 14 DAYS
     Route: 042
     Dates: start: 20041123

REACTIONS (2)
  - DYSPNOEA [None]
  - NAUSEA [None]
